FAERS Safety Report 10707731 (Version 1)
Quarter: 2015Q1

REPORT INFORMATION
  Report Type: Spontaneous
  Country: US (occurrence: US)
  Receive Date: 20150113
  Receipt Date: 20150113
  Transmission Date: 20150721
  Serious: Yes (Death)
  Sender: FDA-Public Use
  Company Number: US-PFIZER INC-2015006850

PATIENT
  Age: 38 Year
  Sex: Male

DRUGS (1)
  1. AMLODIPINE/ATORVASTATIN [Suspect]
     Active Substance: AMLODIPINE BESYLATE\ATORVASTATIN CALCIUM

REACTIONS (4)
  - Respiratory arrest [Fatal]
  - Death [Fatal]
  - Cardiac arrest [Fatal]
  - Exposure via ingestion [None]

NARRATIVE: CASE EVENT DATE: 2013
